FAERS Safety Report 4502789-X (Version None)
Quarter: 2004Q4

REPORT INFORMATION
  Report Type: 
  Country: None (occurrence: None)
  Receive Date: 20041116
  Receipt Date: 20041116
  Transmission Date: 20050328
  Serious: Yes (Hospitalization, Other)
  Sender: FDA-Public Use
  Company Number: None

PATIENT
  Age: 7 Year
  Sex: Male
  Weight: 20.4119 kg

DRUGS (1)
  1. FOCALIN [Suspect]
     Indication: ATTENTION DEFICIT/HYPERACTIVITY DISORDER
     Dosage: 2 X'S DAY
     Dates: start: 20041021, end: 20041109

REACTIONS (6)
  - CRYING [None]
  - FEELING ABNORMAL [None]
  - HALLUCINATIONS, MIXED [None]
  - MUSCLE TWITCHING [None]
  - SCREAMING [None]
  - SENSORY DISTURBANCE [None]
